FAERS Safety Report 22290128 (Version 1)
Quarter: 2023Q2

REPORT INFORMATION
  Report Type: Spontaneous
  Country: US (occurrence: US)
  Receive Date: 20230505
  Receipt Date: 20230505
  Transmission Date: 20230722
  Serious: No
  Sender: FDA-Public Use
  Company Number: US-BRISTOL-MYERS SQUIBB COMPANY-2023-063826

PATIENT
  Age: 84 Year
  Sex: Male
  Weight: 49.9 kg

DRUGS (1)
  1. LENALIDOMIDE [Suspect]
     Active Substance: LENALIDOMIDE
     Indication: Myelodysplastic syndrome
     Dosage: 1-28 DAYS.
     Route: 048
     Dates: start: 20230206

REACTIONS (1)
  - White blood cell count decreased [Not Recovered/Not Resolved]
